FAERS Safety Report 5592226-9 (Version None)
Quarter: 2007Q4

REPORT INFORMATION
  Report Type: 
  Country: None (occurrence: None)
  Receive Date: 20071212
  Receipt Date: 20070912
  Transmission Date: 20080405
  Serious: Yes (Death, Other)
  Sender: FDA-Public Use
  Company Number: USA-2007-0029169

PATIENT
  Age: 51 Year
  Sex: Female

DRUGS (3)
  1. OXYCONTIN [Suspect]
     Indication: DRUG ABUSER
  2. ALCOHOL (ETHANOL) [Suspect]
     Indication: DRUG ABUSER
  3. VALIUM [Suspect]
     Indication: DRUG ABUSER

REACTIONS (2)
  - OVERDOSE [None]
  - SUBSTANCE ABUSE [None]
